FAERS Safety Report 21209330 (Version 1)
Quarter: 2022Q3

REPORT INFORMATION
  Report Type: Spontaneous
  Country: JP (occurrence: JP)
  Receive Date: 20220813
  Receipt Date: 20220813
  Transmission Date: 20221027
  Serious: Yes (Hospitalization)
  Sender: FDA-Public Use
  Company Number: JP-JNJFOC-20220807306

PATIENT
  Age: 30 Year
  Sex: Male

DRUGS (5)
  1. EPOPROSTENOL [Suspect]
     Active Substance: EPOPROSTENOL
     Indication: Pulmonary arterial hypertension
     Route: 042
  2. RIOCIGUAT [Concomitant]
     Active Substance: RIOCIGUAT
  3. MACITENTAN [Concomitant]
     Active Substance: MACITENTAN
  4. FUROSEMIDE [Concomitant]
     Active Substance: FUROSEMIDE
  5. TRICHLORMETHIAZIDE [Concomitant]
     Active Substance: TRICHLORMETHIAZIDE

REACTIONS (3)
  - Acute kidney injury [Unknown]
  - Cardiac failure high output [Unknown]
  - Device related infection [Unknown]
